FAERS Safety Report 21736394 (Version 1)
Quarter: 2022Q4

REPORT INFORMATION
  Report Type: Spontaneous
  Country: NO (occurrence: NO)
  Receive Date: 20221215
  Receipt Date: 20221215
  Transmission Date: 20230112
  Serious: Yes (Death)
  Sender: FDA-Public Use
  Company Number: NO-BAUSCHBL-2022BNL002645

PATIENT
  Age: 34 Year
  Sex: Male

DRUGS (17)
  1. GANCICLOVIR [Suspect]
     Active Substance: GANCICLOVIR
     Indication: Cytomegalovirus infection
     Dosage: DAY 6
     Route: 065
     Dates: start: 2021
  2. MYCOPHENOLATE MOFETIL [Concomitant]
     Active Substance: MYCOPHENOLATE MOFETIL
     Indication: Toxic epidermal necrolysis
     Dosage: DAY 7
     Dates: start: 2021
  3. METHYLPREDNISOLONE [Concomitant]
     Active Substance: METHYLPREDNISOLONE
     Indication: Toxic epidermal necrolysis
     Dosage: MODERATE/HIGH DOSE ?DAY 1: DERMATOLOGY.
     Route: 042
     Dates: start: 2021
  4. METHYLPREDNISOLONE [Concomitant]
     Active Substance: METHYLPREDNISOLONE
     Dosage: DAY 4: DERMATOLOGY
     Route: 042
     Dates: start: 2021
  5. CHLORAMPHENICOL [Concomitant]
     Active Substance: CHLORAMPHENICOL
     Indication: Toxic epidermal necrolysis
     Dosage: DAY2 :OPHTHALMOLOGY
     Dates: start: 2021
  6. PREDNISOLONE [Concomitant]
     Active Substance: PREDNISOLONE
     Indication: Toxic epidermal necrolysis
     Dosage: DAY 5: OPHTHALMOLOGY
     Dates: start: 2021
  7. VANCOMYCIN [Concomitant]
     Active Substance: VANCOMYCIN
     Indication: Infection prophylaxis
     Dosage: DAY 2
     Dates: start: 2021
  8. FLUCONAZOLE [Concomitant]
     Active Substance: FLUCONAZOLE
     Indication: Infection prophylaxis
     Dosage: DAY 2
     Dates: start: 2021
  9. ANIDULAFUNGIN [Concomitant]
     Active Substance: ANIDULAFUNGIN
     Indication: Infection
     Dosage: DAY 5
     Dates: start: 2021
  10. ANIDULAFUNGIN [Concomitant]
     Active Substance: ANIDULAFUNGIN
     Indication: Neutropenic infection
     Dosage: DAY 17
     Dates: start: 2021
  11. AMDINOCILLIN PIVOXIL [Concomitant]
     Active Substance: AMDINOCILLIN PIVOXIL
     Indication: Product used for unknown indication
     Dosage: 3 DAYS PRIOR TO RASH EXACERBATION
     Dates: start: 20210926
  12. PIPERACILLIN SODIUM\TAZOBACTAM SODIUM [Concomitant]
     Active Substance: PIPERACILLIN SODIUM\TAZOBACTAM SODIUM
     Indication: Product used for unknown indication
     Dosage: 2 DAYS PRIOR TO RASH EXACERBATION
     Dates: start: 20210927
  13. CYCLOSPORINE [Concomitant]
     Active Substance: CYCLOSPORINE
     Indication: Toxic epidermal necrolysis
     Dosage: DAY 2: DERMATOLOGY
     Dates: start: 2021, end: 2021
  14. GENTAMICIN [Concomitant]
     Active Substance: GENTAMICIN
     Indication: Neutropenic infection
     Dosage: DAY 17
     Dates: start: 2021
  15. CLINDAMYCIN [Concomitant]
     Active Substance: CLINDAMYCIN
     Indication: Neutropenic infection
     Dosage: DAY 17
     Dates: start: 2021
  16. CIPROFLOXACIN [Concomitant]
     Active Substance: CIPROFLOXACIN
     Indication: Neutropenic infection
     Dosage: DAY 17
     Dates: start: 2021
  17. IPILIMUMAB [Concomitant]
     Active Substance: IPILIMUMAB
     Indication: Radiotherapy
     Dosage: 3 GRAY X 12 L5-S3
     Dates: start: 20210924

REACTIONS (1)
  - Myelosuppression [Fatal]

NARRATIVE: CASE EVENT DATE: 20210101
